FAERS Safety Report 9508705 (Version 2)
Quarter: 2013Q3

REPORT INFORMATION
  Report Type: Spontaneous
  Country: JP (occurrence: JP)
  Receive Date: 20130909
  Receipt Date: 20130910
  Transmission Date: 20140515
  Serious: Yes (Other)
  Sender: FDA-Public Use
  Company Number: JP-ASTRAZENECA-2013SE66951

PATIENT
  Sex: Male

DRUGS (2)
  1. XYLOCAINE POLYAMP [Suspect]
     Dosage: 1 PERCENT WAS DILUTED TO 0.5 PERCENT WITH PHYSIOLOGICAL SALINE
     Route: 058
     Dates: start: 20130830, end: 20130830
  2. SEISHOKU [Concomitant]
     Route: 065
     Dates: start: 20130830, end: 20130830

REACTIONS (5)
  - Shock [Recovering/Resolving]
  - Flushing [Recovering/Resolving]
  - Ocular hyperaemia [Recovering/Resolving]
  - Swelling face [Recovering/Resolving]
  - Blood pressure decreased [Recovering/Resolving]
